FAERS Safety Report 17421332 (Version 1)
Quarter: 2020Q1

REPORT INFORMATION
  Report Type: Spontaneous
  Country: DE (occurrence: DE)
  Receive Date: 20200214
  Receipt Date: 20200214
  Transmission Date: 20200409
  Serious: Yes (Other)
  Sender: FDA-Public Use
  Company Number: DE-JNJFOC-20200215478

PATIENT
  Age: 62 Year
  Sex: Female
  Weight: 110 kg

DRUGS (7)
  1. GLUCOSAMINE SULFATE [Suspect]
     Active Substance: GLUCOSAMINE SULFATE
     Indication: ARTHRALGIA
     Dosage: 1 DF, BID
     Route: 065
  2. HCT [Concomitant]
     Active Substance: HYDROCHLOROTHIAZIDE
     Dosage: 1-0-0
  3. LOSARTAN. [Concomitant]
     Active Substance: LOSARTAN
     Dosage: 1-0-0
  4. RIVAROXABAN [Suspect]
     Active Substance: RIVAROXABAN
     Indication: PRODUCT USED FOR UNKNOWN INDICATION
     Dosage: 20 MG, QD, 0-1-0
     Route: 048
  5. THYRONAJOD [Concomitant]
     Active Substance: LEVOTHYROXINE SODIUM\POTASSIUM IODIDE
     Dosage: 75  G, QD
  6. EBRANTIL [Concomitant]
     Active Substance: URAPIDIL
     Dosage: 1 DF, BID
  7. BELOC ZOK [Concomitant]
     Active Substance: METOPROLOL SUCCINATE
     Dosage: 95 MG, QD

REACTIONS (2)
  - Ocular discomfort [Unknown]
  - Vitreous detachment [Not Recovered/Not Resolved]

NARRATIVE: CASE EVENT DATE: 20200124
